FAERS Safety Report 9167191 (Version 2)
Quarter: 2013Q1

REPORT INFORMATION
  Report Type: Spontaneous
  Country: US (occurrence: None)
  Receive Date: 20130228
  Receipt Date: 20130308
  Transmission Date: 20140127
  Serious: Yes (Hospitalization)
  Sender: FDA-Public Use
  Company Number: JPI-P-029995

PATIENT
  Age: 48 Year
  Sex: Female
  Weight: 58.51 kg

DRUGS (3)
  1. XYREM [Suspect]
     Indication: FIBROMYALGIA
     Route: 048
     Dates: start: 20120416
  2. PRAVASTATIN SODIUM [Concomitant]
  3. ESOMEPRAZOLE MAGNESIUM [Concomitant]

REACTIONS (3)
  - Dehydration [None]
  - Pyloric stenosis [None]
  - Renal impairment [None]
